FAERS Safety Report 7561957-3 (Version None)
Quarter: 2011Q2

REPORT INFORMATION
  Report Type: 
  Country: None (occurrence: None)
  Receive Date: 20110621
  Receipt Date: 20110613
  Transmission Date: 20111010
  Serious: Yes (Death, Life-Threatening, Other)
  Sender: FDA-Public Use
  Company Number: US-RB-027883-11

PATIENT
  Age: 19 Year
  Sex: Male

DRUGS (2)
  1. SUBUTEX [Suspect]
     Indication: DRUG DEPENDENCE
     Dosage: DOSING INFORMATION UNKNOWN
     Route: 065
  2. KLONOPIN [Suspect]
     Indication: PRODUCT USED FOR UNKNOWN INDICATION
     Dosage: 1 MG TAKEN AS NEEDED
     Route: 065

REACTIONS (4)
  - UNDERDOSE [None]
  - COMPLETED SUICIDE [None]
  - AGGRESSION [None]
  - GUN SHOT WOUND [None]
